FAERS Safety Report 7292937-3 (Version None)
Quarter: 2011Q1

REPORT INFORMATION
  Report Type: 
  Country: None (occurrence: None)
  Receive Date: 20110209
  Receipt Date: 20110209
  Transmission Date: 20110831
  Serious: No
  Sender: FDA-Public Use
  Company Number: None

PATIENT
  Sex: Male
  Weight: 61.2356 kg

DRUGS (1)
  1. LARIAM [Suspect]
     Dosage: 3 LARGE PILLS 3 TIMES A DAY PO
     Route: 048
     Dates: start: 19871201, end: 19871228

REACTIONS (8)
  - INSOMNIA [None]
  - THINKING ABNORMAL [None]
  - PANIC ATTACK [None]
  - DISTURBANCE IN ATTENTION [None]
  - PARANOIA [None]
  - ARTHRALGIA [None]
  - MYALGIA [None]
  - SELF ESTEEM DECREASED [None]
